FAERS Safety Report 19201741 (Version 1)
Quarter: 2021Q2

REPORT INFORMATION
  Report Type: Spontaneous
  Country: US (occurrence: US)
  Receive Date: 20210430
  Receipt Date: 20210430
  Transmission Date: 20210717
  Serious: No
  Sender: FDA-Public Use
  Company Number: US-CELGENEUS-USA-20210405830

PATIENT
  Sex: Male
  Weight: 89.44 kg

DRUGS (4)
  1. REVLIMID [Suspect]
     Active Substance: LENALIDOMIDE
     Dosage: 15 MILLIGRAM
     Route: 048
     Dates: start: 20200302
  2. CLOBETASOL [Concomitant]
     Active Substance: CLOBETASOL
     Indication: SKIN DISORDER
     Route: 065
  3. AMMONIUM LACTATE. [Concomitant]
     Active Substance: AMMONIUM LACTATE
     Indication: SKIN DISORDER
     Route: 065
  4. REVLIMID [Suspect]
     Active Substance: LENALIDOMIDE
     Indication: PLASMA CELL MYELOMA
     Dosage: 25 MILLIGRAM
     Route: 048
     Dates: start: 201911

REACTIONS (3)
  - Skin atrophy [Unknown]
  - Skin haemorrhage [Unknown]
  - Contusion [Unknown]
